FAERS Safety Report 8037702-4 (Version None)
Quarter: 2012Q1

REPORT INFORMATION
  Report Type: 
  Country: None (occurrence: None)
  Receive Date: 20120111
  Receipt Date: 20111227
  Transmission Date: 20120608
  Serious: Yes (Other)
  Sender: FDA-Public Use
  Company Number: US-PFIZER INC-HQWYE971717AUG05

PATIENT
  Sex: Female

DRUGS (4)
  1. ESTRACE [Suspect]
     Dosage: UNK
  2. PROVERA [Suspect]
     Indication: HORMONE REPLACEMENT THERAPY
     Dosage: UNK
  3. PREFEST [Suspect]
     Dosage: UNK
  4. PREMPRO [Suspect]
     Indication: HORMONE REPLACEMENT THERAPY
     Dosage: UNKNOWN
     Route: 048
     Dates: start: 19920101, end: 20010101

REACTIONS (1)
  - BREAST CANCER FEMALE [None]
